FAERS Safety Report 7288835-1 (Version None)
Quarter: 2011Q1

REPORT INFORMATION
  Report Type: 
  Country: None (occurrence: None)
  Receive Date: 20110211
  Receipt Date: 20110201
  Transmission Date: 20110831
  Serious: Yes (Other)
  Sender: FDA-Public Use
  Company Number: CA-JNJFOC-20110201399

PATIENT
  Sex: Female

DRUGS (8)
  1. VITALUX NOS [Concomitant]
  2. REMICADE [Suspect]
     Dosage: Q 6-8 WEEKS
     Route: 042
  3. METRONIDAZOLE [Concomitant]
  4. BIRTH CONTROL PILL [Concomitant]
  5. METHOTREXATE [Concomitant]
  6. SYNTHROID [Concomitant]
  7. REMICADE [Suspect]
     Indication: CROHN'S DISEASE
     Route: 042
  8. FOLIC ACID [Concomitant]

REACTIONS (1)
  - ANGIOEDEMA [None]
